FAERS Safety Report 10443601 (Version 1)
Quarter: 2014Q3

REPORT INFORMATION
  Report Type: Spontaneous
  Country: US (occurrence: US)
  Receive Date: 20140910
  Receipt Date: 20140910
  Transmission Date: 20150326
  Serious: No
  Sender: FDA-Public Use
  Company Number: US-BIOGENIDEC-2014BI090568

PATIENT
  Age: 28 Year
  Sex: Female

DRUGS (1)
  1. TECFIDERA [Suspect]
     Active Substance: DIMETHYL FUMARATE
     Indication: MULTIPLE SCLEROSIS
     Route: 048
     Dates: start: 20140731

REACTIONS (8)
  - Abdominal pain upper [Unknown]
  - Flushing [Not Recovered/Not Resolved]
  - Vomiting [Unknown]
  - Hot flush [Unknown]
  - Dyspepsia [Unknown]
  - Off label use [Not Recovered/Not Resolved]
  - Nausea [Unknown]
  - Influenza like illness [Not Recovered/Not Resolved]

NARRATIVE: CASE EVENT DATE: 20140731
